FAERS Safety Report 22162083 (Version 1)
Quarter: 2023Q1

REPORT INFORMATION
  Report Type: Spontaneous
  Country: GB (occurrence: GB)
  Receive Date: 20230331
  Receipt Date: 20230331
  Transmission Date: 20230418
  Serious: Yes (Death, Other)
  Sender: FDA-Public Use
  Company Number: None

PATIENT
  Age: 85 Year
  Sex: Male

DRUGS (13)
  1. DALTEPARIN SODIUM [Suspect]
     Active Substance: DALTEPARIN SODIUM
  2. APIXABAN [Suspect]
     Active Substance: APIXABAN
     Dosage: 14
  3. BISOPROLOL [Concomitant]
     Active Substance: BISOPROLOL
     Dosage: 7
  4. BUMETANIDE [Concomitant]
     Active Substance: BUMETANIDE
     Dosage: EACH MORNING, 7
  5. CETIRIZINE [Concomitant]
     Active Substance: CETIRIZINE HYDROCHLORIDE
     Dosage: 7
  6. COCODAMOL [Concomitant]
     Active Substance: ACETAMINOPHEN\CODEINE PHOSPHATE
     Dosage: 30/500MG, ONE OR TWO AT NIGHT, 60
     Dates: start: 20220825
  7. CALCIUM CARBONATE\CHOLECALCIFEROL [Concomitant]
     Active Substance: CALCIUM CARBONATE\CHOLECALCIFEROL
     Dosage: /200UNIT CAPLET, 28, KYOWA KIRIN LTD
  8. LANSOPRAZOLE [Concomitant]
     Active Substance: LANSOPRAZOLE
     Dosage: EACH MORNING, 7
  9. OXYCODONE [Concomitant]
     Active Substance: OXYCODONE
  10. PHENOBARBITAL [Concomitant]
     Active Substance: PHENOBARBITAL
     Dosage: EACH MORNING
  11. PHENYTOIN [Concomitant]
     Active Substance: PHENYTOIN
     Dosage: EACH MORNING, 14
  12. TOLTERODINE [Concomitant]
     Active Substance: TOLTERODINE
     Dosage: IN THE MORNING, 7 ASPIRE PHARMA LTD
  13. AVEENO [Concomitant]
     Active Substance: DIMETHICONE\HOMOSALATE\OCTINOXATE\OCTISALATE\TITANIUM DIOXIDE
     Dosage: JOHNSON + JOHNSON LTD
     Dates: start: 20220517

REACTIONS (1)
  - Cerebral haemorrhage [Fatal]
